FAERS Safety Report 10740489 (Version 1)
Quarter: 2015Q1

REPORT INFORMATION
  Report Type: Spontaneous
  Country: US (occurrence: None)
  Receive Date: 20150122
  Receipt Date: 20150122
  Transmission Date: 20150721
  Serious: Yes (Hospitalization)
  Sender: FDA-Public Use
  Company Number: None

PATIENT
  Age: 62 Year
  Sex: Male
  Weight: 141 kg

DRUGS (1)
  1. ENOXAPARIN (GENERIC) [Suspect]
     Active Substance: ENOXAPARIN
     Indication: ATRIAL FIBRILLATION
     Dosage: ML  SQ
     Route: 058
     Dates: start: 20130508, end: 20130510

REACTIONS (2)
  - Muscle haemorrhage [None]
  - Haemorrhage [None]

NARRATIVE: CASE EVENT DATE: 20130408
